FAERS Safety Report 10293305 (Version 2)
Quarter: 2014Q3

REPORT INFORMATION
  Report Type: Spontaneous
  Country: FR (occurrence: FR)
  Receive Date: 20140710
  Receipt Date: 20140710
  Transmission Date: 20150326
  Serious: Yes (Hospitalization)
  Sender: FDA-Public Use
  Company Number: FR-PFIZER INC-2010089550

PATIENT
  Age: 50 Year
  Sex: Male

DRUGS (4)
  1. RAMIPRIL. [Suspect]
     Active Substance: RAMIPRIL
     Dosage: 1 DF, DAILY (10 MG TABLET)
     Route: 048
     Dates: end: 20100615
  2. BISOPROLOL HEMIFUMARATE [Concomitant]
     Active Substance: BISOPROLOL
     Dosage: 1 DF, 1X/DAY
     Route: 048
  3. ALDACTAZINE [Suspect]
     Active Substance: ALTHIAZIDE\SPIRONOLACTONE
     Dosage: UNK
     Dates: end: 20100615
  4. LESCOL [Suspect]
     Active Substance: FLUVASTATIN SODIUM
     Dosage: 80 MG, DAILY
     Route: 048
     Dates: end: 20100615

REACTIONS (5)
  - Thrombocytopenia [Unknown]
  - Purpura [Unknown]
  - Haematoma [Unknown]
  - Ecchymosis [Unknown]
  - Hepatomegaly [Unknown]

NARRATIVE: CASE EVENT DATE: 20100615
